FAERS Safety Report 4502251-4 (Version None)
Quarter: 2004Q4

REPORT INFORMATION
  Report Type: 
  Country: None (occurrence: None)
  Receive Date: 20041109
  Receipt Date: 20041026
  Transmission Date: 20050328
  Serious: Yes (Hospitalization)
  Sender: FDA-Public Use
  Company Number: DE_041014555

PATIENT
  Age: 66 Year
  Sex: Male

DRUGS (4)
  1. ZYPREXA [Suspect]
     Indication: DEPRESSION
     Dosage: 2.5 MG/1 DAY
  2. QUILONUM - SLOW RELEASE          (LITHIUM CARBONATE) [Concomitant]
  3. CITALOPRAM HYDROBROMIDE [Concomitant]
  4. DOCITON         (PROPRANOLOL HYDROCHLORIDE) [Concomitant]

REACTIONS (2)
  - ATROPHY [None]
  - PARKINSON'S DISEASE [None]
